FAERS Safety Report 5085953-3 (Version None)
Quarter: 2006Q3

REPORT INFORMATION
  Report Type: 
  Country: None (occurrence: None)
  Receive Date: 20060822
  Receipt Date: 20060818
  Transmission Date: 20061208
  Serious: Yes (Hospitalization)
  Sender: FDA-Public Use
  Company Number: CA-MERCK-0608CAN00109

PATIENT
  Age: 64 Year
  Sex: Male
  Weight: 95 kg

DRUGS (6)
  1. COZAAR [Suspect]
     Indication: HYPERTENSION
     Route: 048
     Dates: start: 20060620
  2. ENALAPRIL MALEATE [Concomitant]
     Indication: HYPERTENSION
     Route: 065
     Dates: start: 19970701
  3. ASPIRIN [Concomitant]
     Indication: PROPHYLAXIS
     Route: 065
     Dates: start: 19970701
  4. ACETAMINOPHEN [Concomitant]
     Indication: OSTEOARTHRITIS
     Route: 065
     Dates: start: 19950101
  5. ACETAMINOPHEN [Concomitant]
     Route: 065
     Dates: start: 19950101
  6. IBUPROFEN [Concomitant]
     Indication: OSTEOARTHRITIS
     Route: 065

REACTIONS (1)
  - GASTRIC ULCER HAEMORRHAGE [None]
